FAERS Safety Report 6558783-0 (Version None)
Quarter: 2010Q1

REPORT INFORMATION
  Report Type: 
  Country: None (occurrence: None)
  Receive Date: 20100129
  Receipt Date: 20100119
  Transmission Date: 20100710
  Serious: Yes (Hospitalization)
  Sender: FDA-Public Use
  Company Number: US-WATSON-2010-00767

PATIENT
  Age: 67 Year
  Sex: Female

DRUGS (2)
  1. DIPYRIDAMOLE (WATSON LABORATORIES) [Suspect]
     Indication: CARDIAC STRESS TEST
     Dosage: UNK
     Route: 042
  2. METOPROLOL (WATSON LABORATORIES) [Suspect]
     Indication: HYPERTENSION
     Dosage: 50 MG, BID
     Route: 048

REACTIONS (1)
  - CARDIAC ARREST [None]
